FAERS Safety Report 6016635-9 (Version None)
Quarter: 2008Q4

REPORT INFORMATION
  Report Type: 
  Country: None (occurrence: None)
  Receive Date: 20081222
  Receipt Date: 20081215
  Transmission Date: 20090506
  Serious: Yes (Other)
  Sender: FDA-Public Use
  Company Number: PHBS2008SE06653

PATIENT
  Sex: Female

DRUGS (6)
  1. DICLOFENAC SODIUM [Suspect]
     Dosage: UNK
  2. LAPACHO-TEE [Suspect]
     Dosage: UNK
  3. GABAPENTIN [Concomitant]
  4. PREDNISOLONE [Concomitant]
     Dosage: 7.5 MG
  5. PREDNISOLONE [Concomitant]
     Dosage: 5 MG
  6. PHENYTOIN [Concomitant]

REACTIONS (2)
  - ABDOMINAL PAIN UPPER [None]
  - EPILEPSY [None]
